FAERS Safety Report 18197439 (Version 1)
Quarter: 2020Q3

REPORT INFORMATION
  Report Type: Spontaneous
  Country: US (occurrence: US)
  Receive Date: 20200825
  Receipt Date: 20200825
  Transmission Date: 20201103
  Serious: Yes (Hospitalization)
  Sender: FDA-Public Use
  Company Number: None

PATIENT
  Age: 65 Year
  Sex: Male

DRUGS (20)
  1. KETOROLAC [Concomitant]
     Active Substance: KETOROLAC TROMETHAMINE
  2. HYDROXYCHLOR [Concomitant]
     Active Substance: HYDROXYCHLOROQUINE
  3. DULOXETINE. [Concomitant]
     Active Substance: DULOXETINE
  4. SEROQUEL [Concomitant]
     Active Substance: QUETIAPINE FUMARATE
  5. ADVIL [Concomitant]
     Active Substance: IBUPROFEN
  6. AMOX/K CLAV [Concomitant]
     Active Substance: AMOXICILLIN\CLAVULANATE POTASSIUM
  7. BACLOFEN. [Concomitant]
     Active Substance: BACLOFEN
  8. LYRICA METHOTREXATE [Concomitant]
  9. HUMIRA [Suspect]
     Active Substance: ADALIMUMAB
     Indication: RHEUMATOID ARTHRITIS
     Route: 058
     Dates: start: 20151025
  10. ASPIRIN EC [Concomitant]
     Active Substance: ASPIRIN
  11. ISOSORB MONO [Concomitant]
     Active Substance: ISOSORBIDE MONONITRATE
  12. PREGABALIN. [Concomitant]
     Active Substance: PREGABALIN
  13. HYDROCO/APAP [Concomitant]
     Active Substance: ACETAMINOPHEN\HYDROCODONE
  14. TRAMADOL HCL [Concomitant]
     Active Substance: TRAMADOL HYDROCHLORIDE
  15. ZOMIG [Concomitant]
     Active Substance: ZOLMITRIPTAN
  16. ATORVASTATIN [Concomitant]
     Active Substance: ATORVASTATIN
  17. FOLIC ACID. [Concomitant]
     Active Substance: FOLIC ACID
  18. LISINOPRIL. [Concomitant]
     Active Substance: LISINOPRIL
  19. METHYLPRED [Concomitant]
     Active Substance: METHYLPREDNISOLONE
  20. NEO/POLY/DEX [Concomitant]
     Active Substance: DEXAMETHASONE\NEOMYCIN\POLYMYXIN B SULFATE

REACTIONS (1)
  - Transient ischaemic attack [None]

NARRATIVE: CASE EVENT DATE: 20200824
